FAERS Safety Report 5656789-7 (Version None)
Quarter: 2008Q1

REPORT INFORMATION
  Report Type: 
  Country: None (occurrence: None)
  Receive Date: 20080306
  Receipt Date: 20080306
  Transmission Date: 20080703
  Serious: Yes (Other)
  Sender: FDA-Public Use
  Company Number: None

PATIENT
  Age: 41 Year
  Sex: Female
  Weight: 63.05 kg

DRUGS (3)
  1. MICROGESTIN FE 1/20 [Suspect]
     Indication: CONTRACEPTION
     Dosage: 1 /D PO
     Route: 048
     Dates: start: 20080204, end: 20080305
  2. CLONAZEPAM [Concomitant]
  3. PROZAC [Concomitant]

REACTIONS (1)
  - AMENORRHOEA [None]
